FAERS Safety Report 18538692 (Version 3)
Quarter: 2021Q4

REPORT INFORMATION
  Report Type: Report from Study
  Country: JP (occurrence: JP)
  Receive Date: 20201124
  Receipt Date: 20211008
  Transmission Date: 20220303
  Serious: Yes (Hospitalization)
  Sender: FDA-Public Use
  Company Number: JP-CHUGAI-C2020033179ROCHE

PATIENT
  Age: 73 Year
  Sex: Male
  Weight: 72 kg

DRUGS (14)
  1. TOCILIZUMAB [Suspect]
     Active Substance: TOCILIZUMAB
     Indication: Familial mediterranean fever
     Dosage: 19/OCT/2020 [CHEAP MEDICINE]
     Route: 058
     Dates: start: 20190422
  2. TOCILIZUMAB [Suspect]
     Active Substance: TOCILIZUMAB
     Route: 058
     Dates: start: 20181105
  3. JANUVIA [Concomitant]
     Active Substance: SITAGLIPTIN PHOSPHATE
     Dosage: BEGINNING OF DOSAGE DAY: TRIAL PREINITIATION
  4. ATORVASTATIN [Concomitant]
     Active Substance: ATORVASTATIN
     Indication: Dyslipidaemia
     Dosage: BEGINNING OF DOSAGE DAY: TRIAL PREINITIATION
     Route: 048
  5. VOGLIBOSE [Concomitant]
     Active Substance: VOGLIBOSE
     Indication: Diabetes mellitus
     Route: 048
     Dates: start: 2008
  6. CALONAL [Concomitant]
     Active Substance: ACETAMINOPHEN
     Dosage: SINGLE USE
     Route: 048
     Dates: start: 20190511
  7. AMITIZA [Concomitant]
     Active Substance: LUBIPROSTONE
     Route: 048
  8. NAFTOPIDIL [Concomitant]
     Active Substance: NAFTOPIDIL
     Route: 048
     Dates: start: 20180621
  9. NIZORAL [Concomitant]
     Active Substance: KETOCONAZOLE
     Indication: Prophylaxis
     Dosage: BEGINNING OF DOSAGE DAY: ..TRIAL PREINITIATION.. ..PROPER QUANTITY.. PROPERLY
     Route: 061
  10. LOXOPROFEN SODIUM [Concomitant]
     Active Substance: LOXOPROFEN SODIUM
     Indication: Prophylaxis
     Dosage: SINGLE USE
     Route: 048
     Dates: start: 20191009
  11. LOXOPROFEN SODIUM [Concomitant]
     Active Substance: LOXOPROFEN SODIUM
     Indication: Prophylaxis
     Dosage: ...PROPER QUANTITY.. PROPERLY
     Route: 061
     Dates: start: 20191120
  12. REBAMIPIDE [Concomitant]
     Active Substance: REBAMIPIDE
     Indication: Prophylaxis
     Dosage: SINGLE USE
     Route: 048
     Dates: start: 20191009
  13. DEXAMETHASONE [Concomitant]
     Active Substance: DEXAMETHASONE
     Indication: Prophylaxis
     Dosage: ...PROPER QUANTITY.. PROPERLY
     Route: 049
     Dates: start: 20191120
  14. INDOMETHACIN [Concomitant]
     Active Substance: INDOMETHACIN
     Indication: Prophylaxis
     Dosage: ...PROPER QUANTITY.. PROPERLY
     Route: 061
     Dates: start: 20191120

REACTIONS (1)
  - Abscess neck [Recovering/Resolving]

NARRATIVE: CASE EVENT DATE: 20201013
